FAERS Safety Report 15022751 (Version 4)
Quarter: 2020Q2

REPORT INFORMATION
  Report Type: Spontaneous
  Country: US (occurrence: US)
  Receive Date: 20180618
  Receipt Date: 20200413
  Transmission Date: 20200713
  Serious: No
  Sender: FDA-Public Use
  Company Number: US-PFIZER INC-2018245548

PATIENT
  Age: 65 Year
  Sex: Female

DRUGS (1)
  1. METHOTREXATE SODIUM. [Suspect]
     Active Substance: METHOTREXATE SODIUM
     Indication: AUTOIMMUNE ARTHRITIS
     Dosage: UNK

REACTIONS (6)
  - Fungal skin infection [Unknown]
  - Rash [Unknown]
  - Drug ineffective [Unknown]
  - Malaise [Unknown]
  - Onychomycosis [Unknown]
  - Pustular psoriasis [Unknown]
